FAERS Safety Report 9434476 (Version 2)
Quarter: 2013Q4

REPORT INFORMATION
  Report Type: Spontaneous
  Country: US (occurrence: US)
  Receive Date: 20130801
  Receipt Date: 20131021
  Transmission Date: 20140711
  Serious: Yes (Hospitalization)
  Sender: FDA-Public Use
  Company Number: US-UCBSA-092850

PATIENT
  Age: 55 Year
  Sex: Female
  Weight: 52.16 kg

DRUGS (2)
  1. KEPPRA XR [Suspect]
     Indication: CONVULSION
     Dosage: STRENGTH: 500 MG
     Route: 048
     Dates: start: 2007
  2. TEGRETOL [Concomitant]
     Indication: EPILEPSY
     Dates: start: 2007

REACTIONS (2)
  - Bipolar disorder [Not Recovered/Not Resolved]
  - Chronic obstructive pulmonary disease [Unknown]
